FAERS Safety Report 7148544-6 (Version None)
Quarter: 2010Q4

REPORT INFORMATION
  Report Type: 
  Country: None (occurrence: None)
  Receive Date: 20101209
  Receipt Date: 20101129
  Transmission Date: 20110411
  Serious: Yes (Other)
  Sender: FDA-Public Use
  Company Number: IE-BRISTOL-MYERS SQUIBB COMPANY-15429186

PATIENT
  Age: 27 Year
  Sex: Female

DRUGS (6)
  1. ABILIFY [Suspect]
     Indication: PSYCHOTIC DISORDER
     Dosage: INITIAL DOSE JUL2010:5MG;INCREASED TO 10MG ON SEP2010
     Dates: start: 20100901
  2. ABILIFY [Suspect]
     Indication: LEARNING DISABILITY
     Dosage: INITIAL DOSE JUL2010:5MG;INCREASED TO 10MG ON SEP2010
     Dates: start: 20100901
  3. ABILIFY [Suspect]
     Indication: EPILEPSY
     Dosage: INITIAL DOSE JUL2010:5MG;INCREASED TO 10MG ON SEP2010
     Dates: start: 20100901
  4. VALPROATE SODIUM [Concomitant]
  5. ELTROXIN [Concomitant]
  6. QUETIAPINE FUMARATE [Concomitant]

REACTIONS (4)
  - AGITATION [None]
  - DEPRESSION [None]
  - INSOMNIA [None]
  - PSYCHOTIC DISORDER [None]
